FAERS Safety Report 4430013-5 (Version None)
Quarter: 2004Q3

REPORT INFORMATION
  Report Type: 
  Country: None (occurrence: None)
  Receive Date: 20040818
  Receipt Date: 20040818
  Transmission Date: 20050211
  Serious: Yes (Life-Threatening, Hospitalization, Disabling)
  Sender: FDA-Public Use
  Company Number: None

PATIENT
  Sex: Female
  Weight: 100.6985 kg

DRUGS (10)
  1. DEPOCYT [Suspect]
     Indication: CENTRAL NERVOUS SYSTEM LYMPHOMA
     Dosage: 50MG INTRATHECALLY
     Route: 037
     Dates: start: 20040607
  2. DEPOCYT [Suspect]
     Indication: PROPHYLAXIS
     Dosage: 50MG INTRATHECALLY
     Route: 037
     Dates: start: 20040607
  3. DEPOCYT [Suspect]
     Indication: CENTRAL NERVOUS SYSTEM LYMPHOMA
     Dosage: 50MG INTRATHECALLY
     Route: 037
     Dates: start: 20040620
  4. DEPOCYT [Suspect]
     Indication: PROPHYLAXIS
     Dosage: 50MG INTRATHECALLY
     Route: 037
     Dates: start: 20040620
  5. DEPOCYT [Suspect]
     Indication: CENTRAL NERVOUS SYSTEM LYMPHOMA
     Dosage: 50MG INTRATHECALLY
     Route: 037
     Dates: start: 20040714
  6. DEPOCYT [Suspect]
     Indication: PROPHYLAXIS
     Dosage: 50MG INTRATHECALLY
     Route: 037
     Dates: start: 20040714
  7. CYCLOPHOSPHAMIDE [Concomitant]
  8. DOXORUBICIN HCL [Concomitant]
  9. VINCRISTINE [Concomitant]
  10. PREDNISONE [Concomitant]

REACTIONS (6)
  - ASTHENIA [None]
  - FAECAL INCONTINENCE [None]
  - HYPOAESTHESIA [None]
  - PARAESTHESIA [None]
  - RESPIRATORY FAILURE [None]
  - URINARY INCONTINENCE [None]
